FAERS Safety Report 25494967 (Version 2)
Quarter: 2025Q3

REPORT INFORMATION
  Report Type: Spontaneous
  Country: EU (occurrence: EU)
  Receive Date: 20250630
  Receipt Date: 20250707
  Transmission Date: 20251020
  Serious: Yes (Hospitalization, Disabling, Other)
  Sender: MYLAN
  Company Number: EU-BALDACCIPT-2025033

PATIENT
  Age: 73 Year
  Sex: Female

DRUGS (4)
  1. ATORVASTATIN [Suspect]
     Active Substance: ATORVASTATIN
     Indication: Dyslipidaemia
  2. ATORVASTATIN [Suspect]
     Active Substance: ATORVASTATIN
     Route: 065
  3. ATORVASTATIN [Suspect]
     Active Substance: ATORVASTATIN
     Route: 065
  4. ATORVASTATIN [Suspect]
     Active Substance: ATORVASTATIN

REACTIONS (9)
  - Immune-mediated myositis [Recovering/Resolving]
  - Normochromic normocytic anaemia [Unknown]
  - Walking disability [Unknown]
  - Muscular weakness [Unknown]
  - Myoglobin blood increased [Unknown]
  - Blood creatine phosphokinase increased [Not Recovered/Not Resolved]
  - Myopathy [Unknown]
  - Myalgia [Unknown]
  - Condition aggravated [Recovering/Resolving]
